FAERS Safety Report 8761922 (Version 2)
Quarter: 2012Q4

REPORT INFORMATION
  Report Type: 
  Country: US (occurrence: US)
  Receive Date: 20120830
  Receipt Date: 20121019
  Transmission Date: 20130627
  Serious: Yes (Other)
  Sender: FDA-Public Use
  Company Number: US-PFIZER INC-2012211003

PATIENT
  Age: 30 Year
  Sex: Female
  Weight: 49 kg

DRUGS (1)
  1. DEPO-PROVERA [Suspect]
     Indication: CONTRACEPTION
     Dosage: 150 mg, every 3 months
     Route: 030
     Dates: start: 20120822

REACTIONS (4)
  - Pharyngeal oedema [Recovered/Resolved]
  - Urticaria [Recovered/Resolved]
  - Abdominal discomfort [Recovered/Resolved]
  - Malaise [Unknown]
